FAERS Safety Report 6966798 (Version 2)
Quarter: 2014Q1

REPORT INFORMATION
  Report Type: Spontaneous
  Country: US (occurrence: None)
  Receive Date: 20090402
  Receipt Date: 20140219
  Transmission Date: 20141002
  Serious: Yes (Other)
  Sender: FDA-Public Use
  Company Number: 2009S1002611

PATIENT
  Age: 67 Year
  Sex: Male

DRUGS (7)
  1. FLEET PHOSPHO-SODA [Suspect]
     Indication: COLONOSCOPY
     Dosage: 90 ML;TOTAL;PO
     Route: 048
     Dates: start: 20060516, end: 20060516
  2. ACTOS (PIOGLITAZONE HYDROCHLORIDE) [Concomitant]
  3. LISINOPRIL (LISINOPRIL) [Concomitant]
  4. ASPIRIN (ACETYLSALICYLIC ACID) [Concomitant]
  5. LIPITOR (ATORVASTAIN CALCIUM) [Concomitant]
  6. PROSCAR (FINASTERIDE) [Concomitant]
  7. PROZAC (FLUOXETINE HYDROCHLORIDE) [Concomitant]

REACTIONS (5)
  - Malaise [None]
  - Asthenia [None]
  - Fatigue [None]
  - Renal failure acute [None]
  - Nausea [None]
